FAERS Safety Report 13995780 (Version 2)
Quarter: 2017Q4

REPORT INFORMATION
  Report Type: Spontaneous
  Country: FR (occurrence: FR)
  Receive Date: 20170921
  Receipt Date: 20171003
  Transmission Date: 20180321
  Serious: Yes (Disabling, Other)
  Sender: FDA-Public Use
  Company Number: PHHY2017FR137654

PATIENT
  Age: 63 Year
  Sex: Female

DRUGS (1)
  1. ATORVASTATIN SANDOZ [Suspect]
     Active Substance: ATORVASTATIN
     Indication: PRODUCT USED FOR UNKNOWN INDICATION
     Dosage: 1 DF, QD
     Route: 048
     Dates: end: 20170904

REACTIONS (29)
  - Gait disturbance [Not Recovered/Not Resolved]
  - Skin discolouration [Unknown]
  - Arthralgia [Unknown]
  - Back pain [Unknown]
  - Tinnitus [Unknown]
  - Gamma-glutamyltransferase increased [Unknown]
  - Pruritus [Unknown]
  - Blood creatine phosphokinase increased [Unknown]
  - Pharyngeal oedema [Unknown]
  - Blister [Unknown]
  - Genital blister [Unknown]
  - Insomnia [Unknown]
  - Hypoaesthesia [Unknown]
  - Vision blurred [Unknown]
  - Fatigue [Unknown]
  - Dizziness [Unknown]
  - Dyspnoea [Unknown]
  - Malaise [Unknown]
  - Weight increased [Unknown]
  - Muscular weakness [Unknown]
  - Myalgia [Unknown]
  - C-reactive protein increased [Unknown]
  - Muscle spasms [Unknown]
  - Visual impairment [Unknown]
  - Rash macular [Unknown]
  - Pain in extremity [Not Recovered/Not Resolved]
  - Pyrexia [Unknown]
  - Nightmare [Unknown]
  - Amnesia [Unknown]

NARRATIVE: CASE EVENT DATE: 2014
